FAERS Safety Report 6228840-7 (Version None)
Quarter: 2009Q2

REPORT INFORMATION
  Report Type: 
  Country: None (occurrence: None)
  Receive Date: 20090615
  Receipt Date: 20071005
  Transmission Date: 20091009
  Serious: Yes (Other)
  Sender: FDA-Public Use
  Company Number: US-ASTRAZENECA-2006UW24924

PATIENT
  Age: 21085 Day
  Sex: Female
  Weight: 74.4 kg

DRUGS (8)
  1. SEROQUEL [Suspect]
     Indication: DEPRESSION
     Route: 048
     Dates: start: 20050624, end: 20050811
  2. SEROQUEL [Suspect]
     Indication: SLEEP DISORDER
     Route: 048
     Dates: start: 20050624, end: 20050811
  3. EFFEXOR [Concomitant]
     Indication: DEPRESSION
     Dosage: 75 MG TO 150 MG DAILY
     Dates: start: 20040820
  4. LIPITOR [Concomitant]
     Dates: start: 20050707
  5. LORATADINE [Concomitant]
     Dates: start: 20050707
  6. GABAPENTIN [Concomitant]
     Route: 048
     Dates: start: 20050608
  7. AMITRIPTLINE HYDROCHLORIDE TAB [Concomitant]
     Indication: SLEEP DISORDER
     Dates: start: 20050824
  8. DYAZIDE/HCTZ [Concomitant]
     Indication: HYPERTENSION
     Dosage: STRENGTH- 37.5 MG/ 25 MG, DOSE- 37.5 MG/25 MG DAILY
     Dates: start: 20050608

REACTIONS (4)
  - DIABETES MELLITUS [None]
  - INCREASED APPETITE [None]
  - NEUROPATHY PERIPHERAL [None]
  - TYPE 2 DIABETES MELLITUS [None]
